FAERS Safety Report 20596691 (Version 1)
Quarter: 2022Q1

REPORT INFORMATION
  Report Type: Spontaneous
  Country: FR (occurrence: FR)
  Receive Date: 20220315
  Receipt Date: 20220315
  Transmission Date: 20220423
  Serious: Yes (Other)
  Sender: FDA-Public Use
  Company Number: FR-ABBVIE-22K-056-4315603-00

PATIENT
  Age: 65 Year
  Sex: Male

DRUGS (2)
  1. DEPAKOTE ER [Suspect]
     Active Substance: DIVALPROEX SODIUM
     Indication: Product used for unknown indication
     Route: 065
     Dates: start: 2010
  2. CHLORPROMAZINE [Suspect]
     Active Substance: CHLORPROMAZINE
     Indication: Product used for unknown indication
     Route: 065

REACTIONS (10)
  - Liver injury [Unknown]
  - Myalgia [Unknown]
  - Muscular weakness [Unknown]
  - Pain in extremity [Unknown]
  - Back pain [Unknown]
  - Abdominal pain lower [Unknown]
  - Dizziness postural [Unknown]
  - Dizziness [Unknown]
  - Abdominal pain [Unknown]
  - Insomnia [Recovering/Resolving]
